FAERS Safety Report 12968864 (Version 1)
Quarter: 2016Q4

REPORT INFORMATION
  Report Type: Spontaneous
  Country: FR (occurrence: FR)
  Receive Date: 20161123
  Receipt Date: 20161123
  Transmission Date: 20170207
  Serious: Yes (Hospitalization, Other)
  Sender: FDA-Public Use
  Company Number: FR-PFIZER INC-2016541611

PATIENT
  Age: 69 Year
  Sex: Male

DRUGS (2)
  1. CORDARONE [Suspect]
     Active Substance: AMIODARONE HYDROCHLORIDE
     Dosage: UNK
     Route: 048
  2. MINISINTROM [Suspect]
     Active Substance: ACENOCOUMAROL
     Dosage: 0.5 DF, DAILY
     Route: 048

REACTIONS (2)
  - Haemorrhagic stroke [Recovered/Resolved with Sequelae]
  - International normalised ratio increased [Recovering/Resolving]

NARRATIVE: CASE EVENT DATE: 20160629
